FAERS Safety Report 6912684-4 (Version None)
Quarter: 2010Q3

REPORT INFORMATION
  Report Type: 
  Country: None (occurrence: None)
  Receive Date: 20100806
  Receipt Date: 20080925
  Transmission Date: 20110219
  Serious: No
  Sender: FDA-Public Use
  Company Number: US-PFIZER INC-2008081388

PATIENT
  Sex: Female
  Weight: 60 kg

DRUGS (2)
  1. NORPACE [Suspect]
     Indication: VENTRICULAR ARRHYTHMIA
  2. ESTRADIOL [Concomitant]

REACTIONS (1)
  - ATRIAL FIBRILLATION [None]
